FAERS Safety Report 8616729-5 (Version None)
Quarter: 2012Q3

REPORT INFORMATION
  Report Type: 
  Country: None (occurrence: None)
  Receive Date: 20120823
  Receipt Date: 20120820
  Transmission Date: 20120928
  Serious: Yes (Hospitalization)
  Sender: FDA-Public Use
  Company Number: US-PFIZER INC-2012203722

PATIENT
  Sex: Male

DRUGS (1)
  1. LYRICA [Suspect]
     Dosage: UNK
     Dates: start: 20120701

REACTIONS (4)
  - ABASIA [None]
  - HYPOAESTHESIA [None]
  - PAIN [None]
  - MYELITIS TRANSVERSE [None]
